FAERS Safety Report 19568626 (Version 2)
Quarter: 2021Q3

REPORT INFORMATION
  Report Type: Report from Study
  Country: IT (occurrence: IT)
  Receive Date: 20210716
  Receipt Date: 20210721
  Transmission Date: 20211014
  Serious: Yes (Other)
  Sender: FDA-Public Use
  Company Number: IT-EISAI MEDICAL RESEARCH-EC-2021-096158

PATIENT
  Age: 78 Year
  Sex: Male
  Weight: 67 kg

DRUGS (14)
  1. ATENOLOL. [Concomitant]
     Active Substance: ATENOLOL
     Dates: start: 201101
  2. CARDIOASPIRIN [Concomitant]
     Active Substance: ASPIRIN
     Dates: start: 201101
  3. DOXAZOSIN [Concomitant]
     Active Substance: DOXAZOSIN MESYLATE
     Dates: start: 20200727
  4. LENVATINIB [Suspect]
     Active Substance: LENVATINIB
     Indication: NON-SMALL CELL LUNG CANCER METASTATIC
     Dosage: FLUCTUATED DOSE
     Route: 048
     Dates: start: 20200120, end: 20210627
  5. DIOSMECTAL [Concomitant]
     Active Substance: UNSPECIFIED INGREDIENT
     Dates: start: 20210503
  6. PEMBROLIZUMAB. [Suspect]
     Active Substance: PEMBROLIZUMAB
     Indication: NON-SMALL CELL LUNG CANCER METASTATIC
     Route: 041
     Dates: start: 20200120, end: 20210524
  7. TAMSULOSIN HYDROCHLORIDE. [Concomitant]
     Active Substance: TAMSULOSIN HYDROCHLORIDE
     Dates: start: 201101
  8. POLASE [Concomitant]
     Active Substance: MAGNESIUM ASPARTATE\POTASSIUM ASPARTATE
     Dates: start: 20210406
  9. PAROXETINE. [Concomitant]
     Active Substance: PAROXETINE
     Dates: start: 201101
  10. DUTASTERIDE. [Concomitant]
     Active Substance: DUTASTERIDE
     Dates: start: 201101
  11. OLPREZIDE [Concomitant]
     Active Substance: HYDROCHLOROTHIAZIDE\OLMESARTAN MEDOXOMIL
     Dates: start: 201101
  12. LENVATINIB [Suspect]
     Active Substance: LENVATINIB
     Route: 048
     Dates: start: 20210628, end: 20210628
  13. PEMBROLIZUMAB. [Suspect]
     Active Substance: PEMBROLIZUMAB
     Route: 041
     Dates: start: 20210614, end: 20210614
  14. LASIX [Concomitant]
     Active Substance: FUROSEMIDE
     Dates: start: 20200309

REACTIONS (1)
  - Diarrhoea [Recovering/Resolving]

NARRATIVE: CASE EVENT DATE: 20210705
